FAERS Safety Report 16036225 (Version 1)
Quarter: 2019Q1

REPORT INFORMATION
  Report Type: Spontaneous
  Country: US (occurrence: US)
  Receive Date: 20190305
  Receipt Date: 20190305
  Transmission Date: 20190418
  Serious: No
  Sender: FDA-Public Use
  Company Number: US-ALLERGAN-1823075US

PATIENT
  Age: 53 Year
  Sex: Female

DRUGS (1)
  1. ESTRACE [Suspect]
     Active Substance: ESTRADIOL
     Indication: ATROPHIC VULVOVAGINITIS
     Dosage: ? GR X 3 TIMES/WEEK
     Route: 065
     Dates: start: 201801, end: 201804

REACTIONS (1)
  - Vaginal haemorrhage [Not Recovered/Not Resolved]
